FAERS Safety Report 21174964 (Version 2)
Quarter: 2023Q1

REPORT INFORMATION
  Report Type: Spontaneous
  Country: CA (occurrence: CA)
  Receive Date: 20220805
  Receipt Date: 20230303
  Transmission Date: 20230418
  Serious: Yes (Other)
  Sender: FDA-Public Use
  Company Number: CA-SAMSUNG BIOEPIS-SB-2022-18754

PATIENT
  Age: 36 Year
  Sex: Male

DRUGS (4)
  1. ADALIMUMAB [Suspect]
     Active Substance: ADALIMUMAB
     Indication: Crohn^s disease
     Route: 058
  2. ADALIMUMAB [Suspect]
     Active Substance: ADALIMUMAB
     Dosage: UNKNOWN
     Route: 058
  3. ADALIMUMAB [Suspect]
     Active Substance: ADALIMUMAB
     Route: 058
  4. SERTRALINE [Concomitant]
     Active Substance: SERTRALINE HYDROCHLORIDE
     Indication: Product used for unknown indication
     Dosage: UNKNOWN
     Route: 065

REACTIONS (11)
  - Abscess [Unknown]
  - Arthropod sting [Unknown]
  - Diarrhoea [Unknown]
  - General physical health deterioration [Unknown]
  - Haemorrhage [Unknown]
  - Proctalgia [Unknown]
  - Gait inability [Unknown]
  - Joint dislocation [Unknown]
  - Mental disorder [Unknown]
  - Product distribution issue [Unknown]
  - Product dose omission issue [Unknown]
